FAERS Safety Report 9358913 (Version 2)
Quarter: 2015Q1

REPORT INFORMATION
  Report Type: Spontaneous
  Country: PT (occurrence: PT)
  Receive Date: 20130620
  Receipt Date: 20150326
  Transmission Date: 20150721
  Serious: Yes (Death, Other)
  Sender: FDA-Public Use
  Company Number: PHHY2013PT062218

PATIENT
  Age: 78 Year
  Sex: Female

DRUGS (2)
  1. BENZODIAZEPINES [Suspect]
     Active Substance: BENZODIAZEPINE
     Indication: MYOCLONUS
     Dosage: UNK UKN, UNK
  2. VALPROIC ACID. [Suspect]
     Active Substance: VALPROIC ACID
     Indication: MYOCLONUS
     Dosage: UNK UKN, UNK

REACTIONS (3)
  - Death [Fatal]
  - Drug ineffective [Unknown]
  - Muscle twitching [Unknown]
